FAERS Safety Report 16114557 (Version 1)
Quarter: 2019Q1

REPORT INFORMATION
  Report Type: Spontaneous
  Country: FR (occurrence: FR)
  Receive Date: 20190325
  Receipt Date: 20190325
  Transmission Date: 20190418
  Serious: Yes (Hospitalization, Other)
  Sender: FDA-Public Use
  Company Number: FR-PFIZER INC-2019124032

PATIENT
  Age: 41 Year
  Sex: Female
  Weight: 47 kg

DRUGS (5)
  1. THERALENE [Suspect]
     Active Substance: TRIMEPRAZINE
     Indication: POISONING DELIBERATE
     Dosage: 75 DF, SINGLE
     Route: 048
     Dates: start: 20190207, end: 20190207
  2. ARIPIPRAZOLE. [Suspect]
     Active Substance: ARIPIPRAZOLE
     Indication: POISONING DELIBERATE
     Dosage: 540 MG, SINGLE
     Route: 048
     Dates: start: 20190207, end: 20190207
  3. SERESTA [Suspect]
     Active Substance: OXAZEPAM
     Indication: POISONING DELIBERATE
     Dosage: 80 DF, SINGLE
     Route: 048
     Dates: start: 20190207, end: 20190207
  4. LORMETAZEPAM [Suspect]
     Active Substance: LORMETAZEPAM
     Indication: POISONING DELIBERATE
     Dosage: 112 MG, SINGLE
     Route: 048
     Dates: start: 20190207, end: 20190207
  5. VENLAFAXINE HCL [Suspect]
     Active Substance: VENLAFAXINE HYDROCHLORIDE
     Indication: POISONING DELIBERATE
     Dosage: 1500 MG, SINGLE
     Route: 048
     Dates: start: 20190207, end: 20190207

REACTIONS (8)
  - Bradycardia [Recovered/Resolved]
  - Sedation [Recovering/Resolving]
  - Intentional product misuse [Recovered/Resolved]
  - Bladder dilatation [Recovered/Resolved]
  - Hypotonia [Recovering/Resolving]
  - Pneumonia aspiration [Recovered/Resolved]
  - Rhabdomyolysis [Recovered/Resolved]
  - Hypothermia [Recovered/Resolved]

NARRATIVE: CASE EVENT DATE: 20190207
